FAERS Safety Report 10589139 (Version 2)
Quarter: 2014Q4

REPORT INFORMATION
  Report Type: Spontaneous
  Country: PL (occurrence: PL)
  Receive Date: 20141118
  Receipt Date: 20141125
  Transmission Date: 20150529
  Serious: Yes (Other)
  Sender: FDA-Public Use
  Company Number: PHHY2014PL145714

PATIENT
  Age: 59 Year
  Sex: Female
  Weight: 75 kg

DRUGS (4)
  1. LEUCOVORIN CALCIUM SANDOZ [Suspect]
     Active Substance: LEUCOVORIN CALCIUM
     Indication: RECTAL CANCER
     Dosage: 366 MG, UNK
     Dates: start: 20140609, end: 20140611
  2. FLUOROURACIL ACCORD [Suspect]
     Active Substance: FLUOROURACIL
     Dosage: 1090 MG, UNK
     Route: 042
     Dates: start: 20140609, end: 20140611
  3. FLUOROURACIL ACCORD [Suspect]
     Active Substance: FLUOROURACIL
     Indication: RECTAL CANCER
     Dosage: 732 MG, UNK
     Route: 040
     Dates: start: 20140609, end: 20140611
  4. OXALIPLATIN ACCORD [Suspect]
     Active Substance: OXALIPLATIN
     Indication: RECTAL CANCER
     Dosage: 155 MG, UNK
     Route: 042
     Dates: start: 20140609, end: 20140611

REACTIONS (1)
  - Neutropenia [Recovered/Resolved]

NARRATIVE: CASE EVENT DATE: 20140630
